FAERS Safety Report 15552263 (Version 1)
Quarter: 2018Q4

REPORT INFORMATION
  Report Type: Spontaneous
  Country: US (occurrence: US)
  Receive Date: 20181025
  Receipt Date: 20181025
  Transmission Date: 20190205
  Serious: Yes (Hospitalization, Other)
  Sender: FDA-Public Use
  Company Number: US-ASTRAZENECA-2018SE31281

PATIENT
  Age: 796 Month
  Sex: Male
  Weight: 112.5 kg

DRUGS (3)
  1. ECOTRIN [Suspect]
     Active Substance: ASPIRIN
     Route: 048
  2. BYDUREON [Suspect]
     Active Substance: EXENATIDE
     Indication: TYPE 2 DIABETES MELLITUS
     Route: 058
  3. METOPROLOL. [Suspect]
     Active Substance: METOPROLOL
     Indication: HYPERTENSION
     Dosage: DAILY
     Route: 048
     Dates: start: 201709

REACTIONS (6)
  - Cardiac failure congestive [Unknown]
  - Wrong technique in product usage process [Recovered/Resolved]
  - Device malfunction [Unknown]
  - Product dose omission [Unknown]
  - Pulmonary oedema [Recovered/Resolved]
  - Joint swelling [Recovered/Resolved]

NARRATIVE: CASE EVENT DATE: 201801
